FAERS Safety Report 20139816 (Version 1)
Quarter: 2021Q4

REPORT INFORMATION
  Report Type: Spontaneous
  Country: US (occurrence: None)
  Receive Date: 20211201
  Receipt Date: 20211201
  Transmission Date: 20220303
  Serious: Yes (Other)
  Sender: FDA-Public Use
  Company Number: None

PATIENT
  Age: 87 Year
  Sex: Female
  Weight: 63.1 kg

DRUGS (1)
  1. TAGRISSO [Suspect]
     Active Substance: OSIMERTINIB
     Indication: Non-small cell lung cancer
     Dosage: FREQUENCY : DAILY;?
     Route: 048
     Dates: start: 20210509, end: 20211001

REACTIONS (5)
  - Oedema peripheral [None]
  - Dyspnoea [None]
  - Brain natriuretic peptide increased [None]
  - Ejection fraction decreased [None]
  - Fluid retention [None]

NARRATIVE: CASE EVENT DATE: 20211001
